FAERS Safety Report 11304199 (Version 1)
Quarter: 2015Q3

REPORT INFORMATION
  Report Type: Spontaneous
  Country: US (occurrence: US)
  Receive Date: 20150723
  Receipt Date: 20150723
  Transmission Date: 20151125
  Serious: No
  Sender: FDA-Public Use
  Company Number: US-JNJFOC-20140913120

PATIENT
  Age: 41 Year
  Sex: Male
  Weight: 85.73 kg

DRUGS (2)
  1. PEPCID [Suspect]
     Active Substance: FAMOTIDINE
     Indication: GASTRITIS
     Dosage: 2 PILLS; MORNING AND EVENING; USED FOR ALMOST A MONTH.
     Route: 048
  2. PEPCID [Suspect]
     Active Substance: FAMOTIDINE
     Route: 048

REACTIONS (2)
  - Drug ineffective [Unknown]
  - Pain [Unknown]
